FAERS Safety Report 19786643 (Version 2)
Quarter: 2022Q2

REPORT INFORMATION
  Report Type: Report from Study
  Country: HU (occurrence: HU)
  Receive Date: 20210903
  Receipt Date: 20220419
  Transmission Date: 20220721
  Serious: Yes (Hospitalization)
  Sender: FDA-Public Use
  Company Number: HU-JNJFOC-20210855964

PATIENT
  Age: 49 Year
  Sex: Female
  Weight: 56 kg

DRUGS (9)
  1. ESKETAMINE [Suspect]
     Active Substance: ESKETAMINE
     Indication: Depression
     Dates: start: 20180212
  2. ESOMEPRAZOLE [Concomitant]
     Active Substance: ESOMEPRAZOLE
     Indication: Gastrooesophageal reflux disease
     Route: 048
     Dates: start: 2013
  3. BECLOMETHASONE DIPROPIONATE\FORMOTEROL FUMARATE [Concomitant]
     Active Substance: BECLOMETHASONE DIPROPIONATE\FORMOTEROL FUMARATE
     Indication: Asthma
     Dosage: 100/6 MCG
     Route: 055
     Dates: start: 2013
  4. DICLOFENAC [Concomitant]
     Active Substance: DICLOFENAC
     Indication: Headache
     Route: 048
     Dates: start: 2001
  5. PIRACETAM [Concomitant]
     Active Substance: PIRACETAM
     Indication: Headache
     Route: 048
     Dates: start: 20170728
  6. TRAZODONE [Concomitant]
     Active Substance: TRAZODONE HYDROCHLORIDE
     Indication: Depression
     Route: 048
     Dates: start: 20181127
  7. ALPRAZOLAM [Concomitant]
     Active Substance: ALPRAZOLAM
     Indication: Anxiety
     Route: 048
     Dates: start: 20190213
  8. LORDESTIN [Concomitant]
     Indication: Asthma
     Route: 048
     Dates: start: 20190912
  9. METOPROLOL [Concomitant]
     Active Substance: METOPROLOL
     Indication: Tachycardia
     Route: 048
     Dates: start: 20200513

REACTIONS (1)
  - Rectocele [Recovered/Resolved]

NARRATIVE: CASE EVENT DATE: 20210817
